FAERS Safety Report 4623695-6 (Version None)
Quarter: 2005Q1

REPORT INFORMATION
  Report Type: 
  Country: None (occurrence: None)
  Receive Date: 20050331
  Receipt Date: 20050324
  Transmission Date: 20050727
  Serious: Yes (Death, Disabling)
  Sender: FDA-Public Use
  Company Number: PHBS2005IT04196

PATIENT
  Age: 78 Year
  Sex: Female

DRUGS (7)
  1. PREDNISONE [Concomitant]
     Route: 065
  2. PANTECTA [Concomitant]
     Route: 065
  3. TAVOR [Concomitant]
     Route: 065
  4. TORADOL [Concomitant]
     Route: 065
  5. CO-EFFERALGAN [Concomitant]
     Route: 065
  6. AREDIA [Suspect]
     Indication: MULTIPLE MYELOMA
     Dosage: 60 MG, QMO
     Route: 042
     Dates: start: 19990122, end: 20000426
  7. AREDIA [Suspect]
     Dosage: 90 MG, QMO
     Route: 042
     Dates: start: 20000524, end: 20020218

REACTIONS (5)
  - DEATH [None]
  - INFLAMMATION [None]
  - OSTEOMYELITIS CHRONIC [None]
  - TOOTH ABSCESS [None]
  - WOUND DEBRIDEMENT [None]
